FAERS Safety Report 9027279 (Version 3)
Quarter: 2013Q1

REPORT INFORMATION
  Report Type: Spontaneous
  Country: US (occurrence: US)
  Receive Date: 20130123
  Receipt Date: 20130311
  Transmission Date: 20140127
  Serious: Yes (Hospitalization, Other)
  Sender: FDA-Public Use
  Company Number: US-BAUSCH-BL-2013-000183

PATIENT
  Age: 85 Year
  Sex: Female

DRUGS (15)
  1. ZYLET (LOTEPREDNOL ETABONATE 0.5% AND TOBRAMYCIN 0.3% OPHTHALMIC SUSPE [Suspect]
     Indication: PREOPERATIVE CARE
     Dosage: 1 DROP IN THE RIGHT EYE, THREE TIMES PER DAY
     Route: 047
     Dates: start: 20121029, end: 20121119
  2. ZYLET (LOTEPREDNOL ETABONATE 0.5% AND TOBRAMYCIN 0.3% OPHTHALMIC SUSPE [Suspect]
     Indication: POSTOPERATIVE CARE
  3. BROMDAY [Suspect]
     Indication: PREOPERATIVE CARE
     Dosage: 1 DROP IN RIGHT EYE, ONCE DAILY
     Route: 047
     Dates: start: 20121029, end: 20121119
  4. BROMDAY [Suspect]
     Indication: POSTOPERATIVE CARE
  5. BESIVANCE (BESIFLOXACIN OPHTHALMIC SUSPENSION) 0.6% [Suspect]
     Indication: PREOPERATIVE CARE
     Dosage: 1 DROP IN THE RIGHT EYE, THREE TIMES PER DAY
     Route: 047
     Dates: start: 20121029, end: 20121110
  6. BESIVANCE (BESIFLOXACIN OPHTHALMIC SUSPENSION) 0.6% [Suspect]
     Indication: POSTOPERATIVE CARE
  7. GLIMEPIRIDE [Concomitant]
     Route: 048
  8. VACCINIUM MACROCARPON [Concomitant]
     Route: 048
  9. BIMATOPROST [Concomitant]
     Route: 047
  10. TIMOLOL [Concomitant]
     Route: 047
  11. MOMETASONE FUROATE [Concomitant]
     Route: 045
  12. FLUTICASONE PROPIONATE/SALMETEROL XINAFOATE [Concomitant]
  13. TIOTROPIUM BROMIDE [Concomitant]
  14. ACETYLSALICYLIC ACID [Concomitant]
     Route: 048
  15. HYDROCORTISONE [Concomitant]

REACTIONS (7)
  - Dysphagia [Recovered/Resolved]
  - Dizziness [Recovered/Resolved]
  - Presyncope [Recovered/Resolved]
  - Gait disturbance [Recovered/Resolved]
  - Dry throat [Recovered/Resolved]
  - Hypokalaemia [Recovered/Resolved]
  - Candida infection [Recovered/Resolved]
